FAERS Safety Report 23431287 (Version 1)
Quarter: 2024Q1

REPORT INFORMATION
  Report Type: Spontaneous
  Country: JP (occurrence: JP)
  Receive Date: 20240123
  Receipt Date: 20240123
  Transmission Date: 20240410
  Serious: Yes (Hospitalization, Other)
  Sender: FDA-Public Use
  Company Number: JP-shionogi-202313883_EXJ_P_1

PATIENT
  Age: 73 Year
  Sex: Female
  Weight: 53 kg

DRUGS (17)
  1. CYCLOPHOSPHAMIDE [Suspect]
     Active Substance: CYCLOPHOSPHAMIDE
     Indication: Diffuse large B-cell lymphoma
     Dosage: 1150 MG/DAY=750 MG/M2 (100%), DAY-1, AS A PART OF R-CHOP THERAPY, DOSAGE FORM: INJECTION
     Route: 041
     Dates: start: 20230914, end: 20230914
  2. CYCLOPHOSPHAMIDE [Suspect]
     Active Substance: CYCLOPHOSPHAMIDE
     Dosage: 1130 MG/DAY=750 MG/M2 (100%), DAY 5, DR, AS A PART OF DA-EPOCH THERAPY
     Route: 041
     Dates: start: 20231016, end: 20231016
  3. DOXORUBICIN [Suspect]
     Active Substance: DOXORUBICIN
     Indication: Diffuse large B-cell lymphoma
     Dosage: 77.3 MG=50 MG/M2 (100%), ONCE A DAY, DAY 1-5, AS A PART OF R-CHOP THERAPY, FORMULATION: INJECTION
     Route: 041
     Dates: start: 20230914, end: 20230914
  4. DOXORUBICIN [Suspect]
     Active Substance: DOXORUBICIN
     Dosage: 15.1 MG=10 MG/M2 (100%), ONCE A DAY, DAY 1-4, AS A PART OF DA-EPOCH THERAPY, FORMULATION: INJECTION
     Route: 041
     Dates: start: 20231012, end: 20231015
  5. ONCOVIN [Suspect]
     Active Substance: VINCRISTINE SULFATE
     Indication: Diffuse large B-cell lymphoma
     Dosage: 2 MG/BODY (100%), ONCE A DAY, DAY 1, AS A PART OF R-CHOP THERAPY
     Route: 041
     Dates: start: 20230914, end: 20230914
  6. ONCOVIN [Suspect]
     Active Substance: VINCRISTINE SULFATE
     Dosage: 0.6 MG=0.4 MG/M2 (100%), ONCE A DAY, DAY 1-4, AS A PART OF DA-EPOCH THERAPY
     Route: 041
     Dates: start: 20231012, end: 20231015
  7. PREDNISOLONE [Suspect]
     Active Substance: PREDNISOLONE
     Indication: Diffuse large B-cell lymphoma
     Dosage: 100 MG/BODY (100%), ONCE A DAY, DAY 1-5, AS A PART OF R-CHOP THERAPY
     Route: 065
     Dates: start: 20230914, end: 20230918
  8. PREDNISOLONE [Suspect]
     Active Substance: PREDNISOLONE
     Dosage: 90 MG 60 MG/M2 (100%), DAY 1-5, AS A PART OF DA-EPOCH THERAPY
     Route: 065
     Dates: start: 20231012, end: 20231016
  9. RITUXIMAB [Suspect]
     Active Substance: RITUXIMAB
     Indication: Diffuse large B-cell lymphoma
     Dosage: 580 MG=375 MG/M2 (100%), ONCE A DAY, DAY 6, AS A PART OF R-CHOP THERAPY (GENETICAL RECOMBINATION)
     Route: 065
     Dates: start: 20230919, end: 20230919
  10. RITUXIMAB [Suspect]
     Active Substance: RITUXIMAB
     Dosage: 570 MG=375 MG/M2 (100%), ONCE A DAY, DAY-6, AS A PART OF DA-EPOCH THERAPY (GENETICAL RECOMBINATION)
     Route: 065
     Dates: start: 20231017, end: 20231017
  11. ETOPOSIDE [Suspect]
     Active Substance: ETOPOSIDE
     Indication: Diffuse large B-cell lymphoma
     Dosage: 75.8 MG=50 MG/M2 (100%), ONCE A DAY, DAY 1-4, AS A PART OF DA-EPOCH THERAPY
     Route: 065
     Dates: start: 20231012, end: 20231015
  12. PREDONINE [Concomitant]
     Active Substance: PREDNISOLONE
     Indication: Diffuse large B-cell lymphoma
     Dosage: UNK
     Route: 065
  13. VONOPRAZAN FUMARATE [Concomitant]
     Active Substance: VONOPRAZAN FUMARATE
     Dosage: UNK
     Route: 065
  14. APREPITANT [Concomitant]
     Active Substance: APREPITANT
     Dosage: UNK
     Route: 065
  15. GRANISETRON HYDROCHLORIDE [Concomitant]
     Active Substance: GRANISETRON HYDROCHLORIDE
     Dosage: UNK
     Route: 065
  16. POLARAMINE [Concomitant]
     Active Substance: DEXCHLORPHENIRAMINE MALEATE
     Dosage: UNK
     Route: 065
  17. SULFAMETHOXAZOLE\TRIMETHOPRIM [Concomitant]
     Active Substance: SULFAMETHOXAZOLE\TRIMETHOPRIM
     Dosage: UNK
     Route: 065

REACTIONS (2)
  - White blood cell count decreased [Recovered/Resolved]
  - Neutrophil count decreased [Recovering/Resolving]

NARRATIVE: CASE EVENT DATE: 20230922
